FAERS Safety Report 7499397-8 (Version None)
Quarter: 2011Q2

REPORT INFORMATION
  Report Type: 
  Country: None (occurrence: None)
  Receive Date: 20110516
  Receipt Date: 20110509
  Transmission Date: 20111010
  Serious: Yes (Hospitalization)
  Sender: FDA-Public Use
  Company Number: DSA_45563_2011

PATIENT
  Sex: Female
  Weight: 52.1637 kg

DRUGS (3)
  1. NEXIUM [Concomitant]
  2. XENAZINE [Suspect]
     Indication: TARDIVE DYSKINESIA
     Dosage: 12.5 MG, BID ORAL , (12.5 MG,TID, ORAL)
     Route: 048
     Dates: start: 20110325, end: 20110101
  3. XENAZINE [Suspect]
     Indication: TARDIVE DYSKINESIA
     Dosage: 12.5 MG, BID ORAL , (12.5 MG,TID, ORAL)
     Route: 048
     Dates: start: 20110101

REACTIONS (3)
  - CONVULSION [None]
  - INSOMNIA [None]
  - MYOCARDIAL INFARCTION [None]
